FAERS Safety Report 10783753 (Version 1)
Quarter: 2015Q1

REPORT INFORMATION
  Report Type: Spontaneous
  Country: US (occurrence: US)
  Receive Date: 20150210
  Receipt Date: 20150210
  Transmission Date: 20150721
  Serious: Yes (Hospitalization, Other)
  Sender: FDA-Public Use
  Company Number: PHHY2015US015323

PATIENT
  Age: 2 Year
  Sex: Male
  Weight: 13.5 kg

DRUGS (2)
  1. LAMOTRIGINE. [Suspect]
     Active Substance: LAMOTRIGINE
     Dosage: 21 DF, UNK
     Route: 065
  2. LAMOTRIGINE. [Suspect]
     Active Substance: LAMOTRIGINE
     Indication: SEIZURE
     Dosage: 1 DF, UNK
     Route: 065

REACTIONS (6)
  - Agitation [Recovered/Resolved]
  - Hypotonia [Recovered/Resolved]
  - Crying [Recovered/Resolved]
  - Incorrect dose administered [Unknown]
  - Toxicity to various agents [Recovered/Resolved]
  - Myoclonus [Recovered/Resolved]
